FAERS Safety Report 9003211 (Version 4)
Quarter: 2013Q4

REPORT INFORMATION
  Report Type: Report from Study
  Country: US (occurrence: US)
  Receive Date: 20130108
  Receipt Date: 20131008
  Transmission Date: 20140711
  Serious: Yes (Hospitalization, Other)
  Sender: FDA-Public Use
  Company Number: PHEH2012US020509

PATIENT
  Age: 32 Year
  Sex: Female
  Weight: 114.74 kg

DRUGS (4)
  1. GILENYA [Suspect]
     Indication: MULTIPLE SCLEROSIS
     Dosage: 0.5 MG, QD
     Route: 048
     Dates: start: 20120803, end: 20121008
  2. GILENYA [Suspect]
     Dosage: 0.5 MG, QD
     Route: 048
     Dates: start: 20121018
  3. VIT D [Concomitant]
     Indication: VITAMIN D DEFICIENCY
     Dosage: 1000 IU, UNK
     Route: 048
  4. SPIRONOLACTONE AND HYDROCHLOROTHIAZIDE [Concomitant]
     Indication: HYPERTENSION
     Dosage: 1 DF, UNK
     Route: 048

REACTIONS (8)
  - Cellulitis [Unknown]
  - Rash [Unknown]
  - Pyrexia [Unknown]
  - Feeling jittery [Recovered/Resolved with Sequelae]
  - Nervousness [Recovered/Resolved with Sequelae]
  - Feeling abnormal [Recovering/Resolving]
  - Blood potassium decreased [Unknown]
  - Urinary tract infection [Unknown]
